FAERS Safety Report 5517279-5 (Version None)
Quarter: 2007Q4

REPORT INFORMATION
  Report Type: 
  Country: None (occurrence: None)
  Receive Date: 20071114
  Receipt Date: 20071001
  Transmission Date: 20080405
  Serious: No
  Sender: FDA-Public Use
  Company Number: A0684897A

PATIENT
  Age: 40 Year
  Sex: Male

DRUGS (1)
  1. COMMIT [Suspect]
     Indication: DRUG USE FOR UNKNOWN INDICATION

REACTIONS (10)
  - ASTHENIA [None]
  - BALANCE DISORDER [None]
  - DISTURBANCE IN ATTENTION [None]
  - EUPHORIC MOOD [None]
  - FATIGUE [None]
  - HEADACHE [None]
  - INTENTIONAL DRUG MISUSE [None]
  - MEMORY IMPAIRMENT [None]
  - SLEEP DISORDER [None]
  - TREMOR [None]
